FAERS Safety Report 24943616 (Version 2)
Quarter: 2025Q1

REPORT INFORMATION
  Report Type: Spontaneous
  Country: US (occurrence: US)
  Receive Date: 20250207
  Receipt Date: 20250305
  Transmission Date: 20250409
  Serious: No
  Sender: MYLAN
  Company Number: US-MYLANLABS-2025M1007095

PATIENT
  Age: 69 Year
  Sex: Male
  Weight: 64.41 kg

DRUGS (1)
  1. LEVOTHYROXINE SODIUM [Suspect]
     Active Substance: LEVOTHYROXINE SODIUM
     Indication: Autoimmune thyroiditis
     Dosage: 100 MICROGRAM, AM (ONCE A DAY IN THE MORNING)
     Dates: start: 202410, end: 202412

REACTIONS (6)
  - Sexual dysfunction [Unknown]
  - Dizziness [Unknown]
  - Hot flush [Unknown]
  - Asthenia [Unknown]
  - Headache [Unknown]
  - Off label use [Unknown]

NARRATIVE: CASE EVENT DATE: 20241001
